FAERS Safety Report 4350165-5 (Version None)
Quarter: 2004Q2

REPORT INFORMATION
  Report Type: 
  Country: None (occurrence: None)
  Receive Date: 20040428
  Receipt Date: 20040428
  Transmission Date: 20050107
  Serious: Yes (Hospitalization)
  Sender: FDA-Public Use
  Company Number: None

PATIENT
  Age: 80 Year
  Sex: Male
  Weight: 63.05 kg

DRUGS (20)
  1. ATENOLOL [Suspect]
     Indication: HYPERTENSION
     Dosage: 100 MG DAILY
     Dates: start: 20021201, end: 20040212
  2. AMOXICILLIN [Concomitant]
  3. ASPIRIN [Concomitant]
  4. CAPSAICIN [Concomitant]
  5. CLOPIDOGREL BISULFATE [Concomitant]
  6. DIPHENHYDRAMINE HCL [Concomitant]
  7. DOCUSATE CA [Concomitant]
  8. DORZOLAMIDE 2/TIMOLOL [Concomitant]
  9. EPOETIN ALFA, RECOMB [Concomitant]
  10. HYDROPHILIC TOP OINT [Concomitant]
  11. LATANOPROST [Concomitant]
  12. LISINOPRIL [Concomitant]
  13. MAGNESIUM OXIDE [Concomitant]
  14. NUTRITION SUPL ENSURE/VANILLA [Concomitant]
  15. POTASSIUM CL SA [Concomitant]
  16. RALOXIFENE HCL [Concomitant]
  17. RANITIDINE HCL [Concomitant]
  18. SODIUM CHLORIDE INJ [Concomitant]
  19. TUBERCULIN SYRINGE [Concomitant]
  20. BRIMONIDINE TARTRATE [Concomitant]

REACTIONS (2)
  - BRADYCARDIA [None]
  - DIZZINESS [None]
